FAERS Safety Report 6960591-3 (Version None)
Quarter: 2010Q3

REPORT INFORMATION
  Report Type: 
  Country: None (occurrence: None)
  Receive Date: 20100901
  Receipt Date: 20100825
  Transmission Date: 20110219
  Serious: Yes (Other)
  Sender: FDA-Public Use
  Company Number: RU-ABBOTT-10P-251-0666393-00

PATIENT
  Age: 23 Year
  Sex: Male

DRUGS (4)
  1. DEPAKINE ENTERIC [Suspect]
     Indication: AFFECTIVE DISORDER
     Route: 048
     Dates: start: 20100709, end: 20100801
  2. ZYPREXA [Concomitant]
     Indication: PRODUCT USED FOR UNKNOWN INDICATION
     Dates: start: 20100520, end: 20100730
  3. SIBAZON [Concomitant]
     Indication: PRODUCT USED FOR UNKNOWN INDICATION
     Dates: start: 20100520, end: 20100709
  4. HALOPERIDOL [Concomitant]
     Indication: PRODUCT USED FOR UNKNOWN INDICATION
     Dates: start: 20100730, end: 20100730

REACTIONS (1)
  - DERMATITIS [None]
